FAERS Safety Report 4602143-6 (Version None)
Quarter: 2005Q2

REPORT INFORMATION
  Report Type: 
  Country: None (occurrence: None)
  Receive Date: 20050207
  Receipt Date: 20040401
  Transmission Date: 20051028
  Serious: Yes (Hospitalization, Other)
  Sender: FDA-Public Use
  Company Number: HQWYE322801APR04

PATIENT
  Age: 9 Year
  Sex: Male
  Weight: 28.15 kg

DRUGS (2)
  1. REFACTO [Suspect]
     Indication: FACTOR VIII DEFICIENCY
     Dosage: 50 IU/KG QOD PROPHYLAXIS AND AS NEEDED, INTRAVENOUS)
     Route: 042
     Dates: start: 20020610, end: 20040329
  2. VIOXX [Concomitant]

REACTIONS (4)
  - COAGULATION FACTOR DECREASED [None]
  - DRUG INEFFECTIVE [None]
  - HAEMARTHROSIS [None]
  - SOFT TISSUE HAEMORRHAGE [None]
